FAERS Safety Report 7376902-3 (Version None)
Quarter: 2011Q1

REPORT INFORMATION
  Report Type: 
  Country: None (occurrence: None)
  Receive Date: 20110327
  Receipt Date: 20110318
  Transmission Date: 20110831
  Serious: Yes (Other)
  Sender: FDA-Public Use
  Company Number: US-BRISTOL-MYERS SQUIBB COMPANY-15618390

PATIENT
  Age: 54 Year
  Sex: Female
  Weight: 77 kg

DRUGS (4)
  1. METFORMIN HCL [Suspect]
     Indication: DIABETES MELLITUS
     Dates: start: 20020101
  2. ACTOS [Suspect]
     Indication: DIABETES MELLITUS
  3. JANUVIA [Suspect]
     Indication: DIABETES MELLITUS
  4. INSULIN [Suspect]
     Indication: DIABETES MELLITUS

REACTIONS (4)
  - DRUG INEFFECTIVE [None]
  - LIVER DISORDER [None]
  - RENAL DISORDER [None]
  - WEIGHT INCREASED [None]
